FAERS Safety Report 4791081-4 (Version None)
Quarter: 2005Q4

REPORT INFORMATION
  Report Type: 
  Country: None (occurrence: None)
  Receive Date: 20051005
  Receipt Date: 20050915
  Transmission Date: 20060501
  Serious: Yes (Hospitalization, Disabling, Other)
  Sender: FDA-Public Use
  Company Number: EWC050744746

PATIENT
  Age: 65 Year
  Sex: Female

DRUGS (4)
  1. OLANZAPINE [Suspect]
     Indication: BIPOLAR DISORDER
     Dosage: 20 MG DAY
     Dates: end: 20050616
  2. OLANZAPINE [Suspect]
     Indication: BIPOLAR DISORDER
     Dosage: 10 MG/2 DAY
     Dates: start: 20050611, end: 20050614
  3. NOZINAN (LEVOMEPROMAZINE HYDROCHLORIDE) [Concomitant]
  4. LITHIUM CARBONATE [Concomitant]

REACTIONS (21)
  - ABDOMINAL PAIN [None]
  - AGITATION [None]
  - ASCITES [None]
  - CEREBRAL INFARCTION [None]
  - CONFUSIONAL STATE [None]
  - DEVICE RELATED INFECTION [None]
  - HEPATIC FUNCTION ABNORMAL [None]
  - HEPATITIS [None]
  - HYPERCALCAEMIA [None]
  - HYPERPARATHYROIDISM [None]
  - LEUKOCYTOSIS [None]
  - MULTIPLE ENDOCRINE ADENOMATOSIS TYPE I [None]
  - NEUROENDOCRINE TUMOUR [None]
  - PANCREATIC FISTULA [None]
  - PANCREATIC NEOPLASM [None]
  - PARATHYROID TUMOUR BENIGN [None]
  - PROCEDURAL COMPLICATION [None]
  - PYREXIA [None]
  - SOMNOLENCE [None]
  - TARDIVE DYSKINESIA [None]
  - THROMBOCYTHAEMIA [None]
